FAERS Safety Report 7229682-6 (Version None)
Quarter: 2011Q1

REPORT INFORMATION
  Report Type: 
  Country: None (occurrence: None)
  Receive Date: 20110117
  Receipt Date: 20110114
  Transmission Date: 20110831
  Serious: Yes (Hospitalization)
  Sender: FDA-Public Use
  Company Number: PL-TEVA-261401ISR

PATIENT
  Age: 26 Year
  Sex: Male

DRUGS (6)
  1. SULFASALAZINE [Suspect]
     Indication: COLITIS ULCERATIVE
  2. CEFACLOR [Suspect]
  3. CEFOTAXIME SODIUM [Suspect]
  4. FUSAFUNGINE [Suspect]
  5. DOXYCYCLINE [Suspect]
  6. GENTAMICIN [Suspect]
     Indication: UPPER RESPIRATORY TRACT INFECTION
     Route: 030

REACTIONS (2)
  - PAIN [None]
  - TOXIC EPIDERMAL NECROLYSIS [None]
